FAERS Safety Report 8991935 (Version 4)
Quarter: 2014Q1

REPORT INFORMATION
  Report Type: Spontaneous
  Country: CA (occurrence: CA)
  Receive Date: 20121231
  Receipt Date: 20140311
  Transmission Date: 20141002
  Serious: Yes (Other)
  Sender: FDA-Public Use
  Company Number: CA-ROCHE-1175846

PATIENT
  Age: 29 Year
  Sex: Female

DRUGS (9)
  1. XOLAIR [Suspect]
     Indication: ASTHMA
     Route: 058
     Dates: start: 20120528
  2. XOLAIR [Suspect]
     Route: 058
     Dates: start: 20130417
  3. XOLAIR [Suspect]
     Route: 058
     Dates: start: 20131106, end: 20131106
  4. SYMBICORT [Concomitant]
  5. QVAR [Concomitant]
  6. SINGULAIR [Concomitant]
  7. SPIRIVA [Concomitant]
  8. NASONEX [Concomitant]
  9. PREDNISONE [Concomitant]

REACTIONS (5)
  - Pneumonia [Unknown]
  - Nasopharyngitis [Unknown]
  - Fatigue [Recovering/Resolving]
  - Heart rate increased [Unknown]
  - Pregnancy [Unknown]
